FAERS Safety Report 5338911-5 (Version None)
Quarter: 2007Q2

REPORT INFORMATION
  Report Type: 
  Country: None (occurrence: None)
  Receive Date: 20070404
  Receipt Date: 20061208
  Transmission Date: 20071010
  Serious: Yes (Other)
  Sender: FDA-Public Use
  Company Number: HQWYE028213DEC06

PATIENT
  Age: 37 Year
  Sex: Female
  Weight: 65.83 kg

DRUGS (2)
  1. ALAVERT [Suspect]
     Indication: HYPERSENSITIVITY
     Dosage: 1 TABLET 1X PER 1 DAY ORAL
     Route: 048
     Dates: start: 20061207
  2. IBUPROFEN [Concomitant]

REACTIONS (2)
  - DYSKINESIA [None]
  - TREMOR [None]
